FAERS Safety Report 23960019 (Version 1)
Quarter: 2024Q2

REPORT INFORMATION
  Report Type: Spontaneous
  Country: BR (occurrence: BR)
  Receive Date: 20240611
  Receipt Date: 20240611
  Transmission Date: 20240716
  Serious: Yes (Hospitalization)
  Sender: FDA-Public Use
  Company Number: BR-JNJFOC-20240615480

PATIENT
  Age: 41 Year
  Sex: Female
  Weight: 69 kg

DRUGS (1)
  1. SIMPONI [Suspect]
     Active Substance: GOLIMUMAB
     Indication: Ankylosing spondylitis
     Route: 058

REACTIONS (5)
  - Abdominal pain [Unknown]
  - Retching [Unknown]
  - Pain in extremity [Unknown]
  - Back pain [Unknown]
  - Chills [Unknown]

NARRATIVE: CASE EVENT DATE: 20240508
